FAERS Safety Report 8561019-2 (Version None)
Quarter: 2012Q3

REPORT INFORMATION
  Report Type: 
  Country: None (occurrence: None)
  Receive Date: 20120802
  Receipt Date: 20110808
  Transmission Date: 20120928
  Serious: No
  Sender: FDA-Public Use
  Company Number: US-BRISTOL-MYERS SQUIBB COMPANY-15920929

PATIENT

DRUGS (1)
  1. ATAZANAVIR [Suspect]

REACTIONS (1)
  - NEPHROLITHIASIS [None]
